FAERS Safety Report 9115915 (Version 1)
Quarter: 2013Q1

REPORT INFORMATION
  Report Type: Spontaneous
  Country: FR (occurrence: FR)
  Receive Date: 20130225
  Receipt Date: 20130225
  Transmission Date: 20140127
  Serious: Yes (Death, Hospitalization)
  Sender: FDA-Public Use
  Company Number: FR-GLAXOSMITHKLINE-B0868181A

PATIENT
  Age: 29 None
  Sex: Female

DRUGS (6)
  1. HYCAMTIN [Suspect]
     Indication: ADENOCARCINOMA
     Route: 042
     Dates: start: 20120813, end: 20120907
  2. BEVACIZUMAB [Suspect]
     Indication: ADENOCARCINOMA
     Route: 042
     Dates: start: 20120813, end: 20120907
  3. CARBOPLATINE [Concomitant]
     Indication: ADENOCARCINOMA
     Dates: start: 2010, end: 2010
  4. TAXOL [Concomitant]
     Indication: ADENOCARCINOMA
     Dates: start: 2010, end: 2010
  5. CISPLATINE [Concomitant]
     Indication: ADENOCARCINOMA
     Dates: start: 2010, end: 2010
  6. FEMARA [Concomitant]
     Indication: ADENOCARCINOMA
     Dates: start: 201202

REACTIONS (11)
  - Gastrointestinal perforation [Fatal]
  - Abdominal pain [Fatal]
  - Faecaloma [Unknown]
  - Pyrexia [Unknown]
  - Anaemia [Unknown]
  - Thrombocytosis [Unknown]
  - Pneumoperitoneum [Unknown]
  - Small intestinal obstruction [Unknown]
  - Peritonitis [Not Recovered/Not Resolved]
  - Nervous system disorder [Fatal]
  - Cardio-respiratory arrest [Unknown]
